FAERS Safety Report 4379250-9 (Version None)
Quarter: 2004Q2

REPORT INFORMATION
  Report Type: 
  Country: None (occurrence: None)
  Receive Date: 20040610
  Receipt Date: 20040602
  Transmission Date: 20050107
  Serious: Yes (Other)
  Sender: FDA-Public Use
  Company Number: 2004037525

PATIENT
  Age: 55 Year
  Sex: Female
  Weight: 52.1637 kg

DRUGS (2)
  1. UNISOM [Suspect]
     Indication: INSOMNIA
     Dosage: 1/4 TO 1/2 TABLET EVERY DAY, ORAL
     Route: 048
     Dates: start: 20020101
  2. VITAMINS (VITAMINS) [Concomitant]

REACTIONS (1)
  - DRUG DEPENDENCE [None]
